FAERS Safety Report 9884247 (Version 4)
Quarter: 2014Q2

REPORT INFORMATION
  Report Type: Spontaneous
  Country: GB (occurrence: GB)
  Receive Date: 20140210
  Receipt Date: 20140408
  Transmission Date: 20141212
  Serious: Yes (Other)
  Sender: FDA-Public Use
  Company Number: GB-ORION CORPORATION ORION PHARMA-ENTC2014-0049

PATIENT
  Age: 65 Year
  Sex: Male

DRUGS (3)
  1. STALEVO [Suspect]
     Indication: PARKINSON^S DISEASE
     Dosage: STRENGTH: 200/50/200 MG
     Route: 048
  2. STALEVO [Suspect]
     Dosage: 5X 125/31.25/200MG A DAY AND 1X 150/37.5/200MG BEFORE BED
     Route: 048
  3. AZILECT [Concomitant]
     Route: 065

REACTIONS (6)
  - Wrong technique in drug usage process [Recovered/Resolved]
  - Tremor [Unknown]
  - Joint swelling [Unknown]
  - Drug effect decreased [Unknown]
  - Feeling hot [Unknown]
  - Lip swelling [Unknown]
